FAERS Safety Report 26006064 (Version 1)
Quarter: 2025Q4

REPORT INFORMATION
  Report Type: Spontaneous
  Country: JP (occurrence: JP)
  Receive Date: 20251106
  Receipt Date: 20251106
  Transmission Date: 20260117
  Serious: Yes (Life-Threatening, Hospitalization)
  Sender: MACLEODS
  Company Number: JP-MACLEODS PHARMA-MAC2025056131

PATIENT

DRUGS (7)
  1. LEVOFLOXACIN [Suspect]
     Active Substance: LEVOFLOXACIN
     Indication: Appendicitis
     Dosage: INITIAL DOSE OF 500 MG ON A NON-DIALYSIS DAY
     Route: 048
  2. LEVOFLOXACIN [Suspect]
     Active Substance: LEVOFLOXACIN
     Dosage: ON THE THIRD DAY, A REDUCED DOSE OF 250 MG
     Route: 048
  3. METRONIDAZOLE [Concomitant]
     Active Substance: METRONIDAZOLE
     Indication: Appendicitis
     Dosage: 500 MG THREE TIMES DAILY FROM THE BEGINNING
     Route: 065
  4. CARVEDILOL [Concomitant]
     Active Substance: CARVEDILOL
     Indication: Product used for unknown indication
     Route: 065
  5. METHYLDOPA [Concomitant]
     Active Substance: METHYLDOPA
     Indication: Product used for unknown indication
     Route: 065
  6. RAMELTEON [Concomitant]
     Active Substance: RAMELTEON
     Indication: Product used for unknown indication
     Route: 065
  7. SUVOREXANT [Concomitant]
     Active Substance: SUVOREXANT
     Indication: Product used for unknown indication
     Route: 065

REACTIONS (6)
  - Myopathy [Recovered/Resolved]
  - Rash erythematous [Unknown]
  - Macule [Unknown]
  - Papule [Unknown]
  - Photosensitivity reaction [Unknown]
  - Myalgia [Recovered/Resolved]
